FAERS Safety Report 12976780 (Version 1)
Quarter: 2016Q4

REPORT INFORMATION
  Report Type: Spontaneous
  Country: US (occurrence: US)
  Receive Date: 20161128
  Receipt Date: 20161128
  Transmission Date: 20170207
  Serious: Yes (Other)
  Sender: FDA-Public Use
  Company Number: PHEH2016US030364

PATIENT
  Sex: Male

DRUGS (2)
  1. VOTRIENT [Suspect]
     Active Substance: PAZOPANIB HYDROCHLORIDE
     Indication: METASTATIC RENAL CELL CARCINOMA
     Route: 065
  2. VOTRIENT [Suspect]
     Active Substance: PAZOPANIB HYDROCHLORIDE
     Indication: METASTASES TO BONE

REACTIONS (7)
  - Paraesthesia [Unknown]
  - Hair colour changes [Unknown]
  - Abasia [Unknown]
  - Blister [Unknown]
  - Eye colour change [Unknown]
  - Diarrhoea [Unknown]
  - Yellow skin [Unknown]
